FAERS Safety Report 7121157-8 (Version None)
Quarter: 2010Q4

REPORT INFORMATION
  Report Type: 
  Country: None (occurrence: None)
  Receive Date: 20101124
  Receipt Date: 20101110
  Transmission Date: 20110411
  Serious: Yes (Other)
  Sender: FDA-Public Use
  Company Number: PHEH2008US03268

PATIENT
  Sex: Male

DRUGS (7)
  1. AREDIA [Suspect]
     Indication: METASTASES TO BONE
     Dosage: 90 MG MONTHLY
     Dates: start: 20050101
  2. ZOMETA [Suspect]
  3. PROSCAR [Concomitant]
  4. CASODEX [Concomitant]
  5. VERSED [Concomitant]
  6. FENTANYL [Concomitant]
  7. INTEGRILIN [Concomitant]

REACTIONS (14)
  - ANAEMIA [None]
  - ANXIETY [None]
  - BLOOD GLUCOSE INCREASED [None]
  - DEFORMITY [None]
  - DYSPHAGIA [None]
  - EMOTIONAL DISTRESS [None]
  - INFECTION [None]
  - LYMPHOCYTE COUNT DECREASED [None]
  - NEUTROPHIL COUNT INCREASED [None]
  - OSTEONECROSIS OF JAW [None]
  - PAIN [None]
  - PROSTATIC SPECIFIC ANTIGEN INCREASED [None]
  - PULMONARY CONGESTION [None]
  - SUBMANDIBULAR MASS [None]
